FAERS Safety Report 8974627 (Version 2)
Quarter: 2013Q1

REPORT INFORMATION
  Report Type: Spontaneous
  Country: US (occurrence: US)
  Receive Date: 20121220
  Receipt Date: 20130125
  Transmission Date: 20140127
  Serious: No
  Sender: FDA-Public Use
  Company Number: US-009507513-1212USA005217

PATIENT
  Sex: Male

DRUGS (2)
  1. AZASITE [Suspect]
     Dosage: 1 GTT, BID
     Route: 047
     Dates: start: 20121207
  2. AZASITE [Suspect]
     Dosage: 1 GTT, QD
     Route: 047

REACTIONS (4)
  - Drug dose omission [Unknown]
  - Inappropriate schedule of drug administration [Unknown]
  - Product quality issue [Unknown]
  - No adverse event [Unknown]
